FAERS Safety Report 5043172-0 (Version None)
Quarter: 2006Q2

REPORT INFORMATION
  Report Type: 
  Country: None (occurrence: None)
  Receive Date: 20060628
  Receipt Date: 20060613
  Transmission Date: 20061013
  Serious: Yes (Other)
  Sender: FDA-Public Use
  Company Number: 225748

PATIENT
  Age: 60 Year
  Sex: Female

DRUGS (4)
  1. RAPTIVA [Suspect]
     Indication: PSORIASIS
     Dosage: 0.7 MG/KG
     Dates: start: 20060526
  2. ALBUTEROL (ALBUTEROL/ALBUTEROL SULFATE) [Concomitant]
  3. INSULIN [Concomitant]
  4. PRILOSEC [Concomitant]

REACTIONS (9)
  - ABASIA [None]
  - ARTHRITIS [None]
  - BURNING SENSATION [None]
  - FATIGUE [None]
  - HEADACHE [None]
  - INFLUENZA LIKE ILLNESS [None]
  - MUSCULAR WEAKNESS [None]
  - PRURITUS [None]
  - PSORIASIS [None]
